FAERS Safety Report 4772831-X (Version None)
Quarter: 2005Q3

REPORT INFORMATION
  Report Type: 
  Country: None (occurrence: None)
  Receive Date: 20050919
  Receipt Date: 20050808
  Transmission Date: 20060218
  Serious: Yes (Life-Threatening, Hospitalization, Disabling)
  Sender: FDA-Public Use
  Company Number: US-MERCK-0508USA01581

PATIENT
  Sex: Male

DRUGS (1)
  1. VIOXX [Suspect]
     Indication: PAIN
     Route: 048

REACTIONS (2)
  - ARTERIAL DISORDER [None]
  - MYOCARDIAL INFARCTION [None]
